FAERS Safety Report 19975104 (Version 2)
Quarter: 2022Q1

REPORT INFORMATION
  Report Type: Spontaneous
  Country: CH (occurrence: CH)
  Receive Date: 20211020
  Receipt Date: 20220309
  Transmission Date: 20220423
  Serious: Yes (Other)
  Sender: FDA-Public Use
  Company Number: CH-BRISTOL-MYERS SQUIBB COMPANY-BMS-2021-105863

PATIENT
  Age: 66 Year
  Sex: Male

DRUGS (10)
  1. NIVOLUMAB [Suspect]
     Active Substance: NIVOLUMAB
     Indication: Metastatic malignant melanoma
     Dosage: 3 DOSAGE FORM TOTAL, 1 MONTH
     Route: 065
     Dates: start: 201704, end: 201705
  2. NIVOLUMAB [Suspect]
     Active Substance: NIVOLUMAB
     Dosage: 29 DOSAGE FORM TOTAL, 14 MONTHS
     Route: 065
     Dates: start: 201708, end: 201810
  3. IPILIMUMAB [Suspect]
     Active Substance: IPILIMUMAB
     Indication: Metastatic malignant melanoma
     Dosage: 3 DOSAGE FORM TOTAL, 1 MONTH
     Route: 065
     Dates: start: 201704, end: 201705
  4. IPILIMUMAB [Suspect]
     Active Substance: IPILIMUMAB
     Dosage: UNK
     Route: 065
     Dates: start: 201708, end: 201810
  5. PREDNISONE [Suspect]
     Active Substance: PREDNISONE
     Indication: Serositis
     Dosage: 20 MILLIGRAM (DAILY)
     Route: 065
  6. PREDNISONE [Suspect]
     Active Substance: PREDNISONE
     Indication: Arthritis
  7. PREDNISONE [Suspect]
     Active Substance: PREDNISONE
     Indication: Hepatitis
  8. PREDNISONE [Suspect]
     Active Substance: PREDNISONE
     Indication: Cholangitis
  9. PREDNISONE [Suspect]
     Active Substance: PREDNISONE
     Indication: Vitiligo
  10. CIPROFLOXACIN [Suspect]
     Active Substance: CIPROFLOXACIN
     Indication: Urosepsis
     Route: 065

REACTIONS (7)
  - Immune-mediated hepatitis [Unknown]
  - Immune-mediated cholangitis [Unknown]
  - Vitiligo [Unknown]
  - Sinusitis [Unknown]
  - Serositis [Unknown]
  - Arthritis [Unknown]
  - Muscle injury [Recovered/Resolved]

NARRATIVE: CASE EVENT DATE: 20191101
